FAERS Safety Report 7807264-2 (Version None)
Quarter: 2011Q4

REPORT INFORMATION
  Report Type: 
  Country: None (occurrence: None)
  Receive Date: 20111011
  Receipt Date: 20111006
  Transmission Date: 20120403
  Serious: Yes (Hospitalization, Other)
  Sender: FDA-Public Use
  Company Number: US-PFIZER INC-2011118836

PATIENT
  Sex: Female

DRUGS (3)
  1. ESTRATEST [Concomitant]
     Indication: HORMONE THERAPY
     Dosage: UNK
     Dates: start: 20040101, end: 20080101
  2. CHANTIX [Suspect]
     Indication: SMOKING CESSATION THERAPY
     Dosage: UNK
     Dates: start: 20070501, end: 20080801
  3. MIDRIN [Concomitant]
     Indication: MIGRAINE
     Dosage: UNK
     Dates: start: 19910101

REACTIONS (6)
  - SUICIDE ATTEMPT [None]
  - PANIC ATTACK [None]
  - ANXIETY [None]
  - DEPRESSION [None]
  - ANGER [None]
  - INTENTIONAL OVERDOSE [None]
